FAERS Safety Report 4682312-X (Version None)
Quarter: 2005Q2

REPORT INFORMATION
  Report Type: 
  Country: None (occurrence: None)
  Receive Date: 20050606
  Receipt Date: 20050525
  Transmission Date: 20051028
  Serious: Yes (Other)
  Sender: FDA-Public Use
  Company Number: BR-JNJFOC-20050600127

PATIENT
  Age: 24 Year
  Sex: Female

DRUGS (6)
  1. TYLENOL (CAPLET) [Suspect]
  2. TYLENOL (CAPLET) [Suspect]
     Indication: SUICIDE ATTEMPT
     Dosage: 10 TABLETS
  3. BROMAZEPAM [Suspect]
     Indication: SUICIDE ATTEMPT
     Dosage: 10 CAPSULES
  4. CEFALEXINA [Suspect]
     Indication: SUICIDE ATTEMPT
     Dosage: 10 TABLETS
  5. AMOXICILINA [Suspect]
     Indication: SUICIDE ATTEMPT
     Dosage: 10 TABLETS
  6. HIDROXIDO [Suspect]
     Indication: SUICIDE ATTEMPT
     Dosage: 10 TABLETS

REACTIONS (3)
  - INTENTIONAL MISUSE [None]
  - MULTIPLE DRUG OVERDOSE [None]
  - SUICIDE ATTEMPT [None]
